FAERS Safety Report 18734105 (Version 1)
Quarter: 2021Q1

REPORT INFORMATION
  Report Type: Spontaneous
  Country: US (occurrence: US)
  Receive Date: 20210113
  Receipt Date: 20210113
  Transmission Date: 20210419
  Serious: Yes (Hospitalization)
  Sender: FDA-Public Use
  Company Number: US-STRIDES ARCOLAB LIMITED-2021SP000544

PATIENT
  Age: 3 Year
  Sex: Female

DRUGS (3)
  1. ACETAZOLAMIDE. [Suspect]
     Active Substance: ACETAZOLAMIDE
     Indication: DEVELOPMENTAL GLAUCOMA
     Dosage: 125 MILLIGRAM, TID
     Route: 048
  2. TRAVATAN Z [Concomitant]
     Active Substance: TRAVOPROST
     Indication: DEVELOPMENTAL GLAUCOMA
     Dosage: UNK
     Route: 065
  3. COSOPT [Concomitant]
     Active Substance: DORZOLAMIDE HYDROCHLORIDE\TIMOLOL MALEATE
     Indication: DEVELOPMENTAL GLAUCOMA
     Dosage: UNK
     Route: 065

REACTIONS (5)
  - Toxic encephalopathy [Recovered/Resolved]
  - Electrolyte imbalance [Recovered/Resolved]
  - Acidosis [Recovered/Resolved]
  - Paralysis [Recovered/Resolved]
  - Hypoglycaemia [Recovered/Resolved]
